FAERS Safety Report 11031651 (Version 1)
Quarter: 2015Q2

REPORT INFORMATION
  Report Type: Spontaneous
  Country: US (occurrence: US)
  Receive Date: 20150415
  Receipt Date: 20150415
  Transmission Date: 20150821
  Serious: No
  Sender: FDA-Public Use
  Company Number: US-SA-2015SA018789

PATIENT
  Sex: Female

DRUGS (23)
  1. HYDROCHLOROTHIAZIDE/TRIAMTERENE [Concomitant]
     Dosage: STRENGTH: 37.5-25 MG, DOSE: 1 CAPSULE
     Route: 048
  2. BUPROPION HYDROCHLORIDE. [Concomitant]
     Active Substance: BUPROPION HYDROCHLORIDE
     Dosage: STRENGTH: 75 MG, DOSE: 1 TABLET
     Dates: start: 20140301
  3. GUAIFENESIN/CODEINE [Concomitant]
     Indication: CHRONIC OBSTRUCTIVE PULMONARY DISEASE
     Dosage: STRENGTH:100-10 MG/5 ML DOSE:1 TEASPOON(S)
     Dates: start: 20140805
  4. ONDANSETRON [Concomitant]
     Active Substance: ONDANSETRON
     Indication: NAUSEA
     Dosage: STRENGTH: 4 MG, DOSE: 1 TABLET DISPERSE EVERY 4 HOURS AS PER REQUIREMENT
     Dates: start: 20140328
  5. NORCO [Concomitant]
     Active Substance: ACETAMINOPHEN\HYDROCODONE BITARTRATE
     Dosage: STRENGTH: 10-325 MG: DOSE: 1 TABLET
     Route: 048
  6. NEXIUM [Concomitant]
     Active Substance: ESOMEPRAZOLE MAGNESIUM
     Indication: GASTROOESOPHAGEAL REFLUX DISEASE
     Dosage: STRENGTH: 40 MG, DOSE: 1 CAPSULE
     Dates: start: 20140910
  7. ELIQUIS [Concomitant]
     Active Substance: APIXABAN
     Indication: ATRIAL FIBRILLATION
     Dosage: STRENGTH:5 MG, DOSE: 1 TABLET
     Dates: start: 20140813
  8. PROCTOCORT [Concomitant]
     Active Substance: HYDROCORTISONE
     Indication: CONSTIPATION
     Dosage: STRENGTH: 1%, DOSE: CREAM TWO TIMES DAILY, AS NEEDED
     Dates: start: 20140813
  9. RANITIDINE HYDROCHLORIDE. [Concomitant]
     Active Substance: RANITIDINE HYDROCHLORIDE
     Indication: GASTROOESOPHAGEAL REFLUX DISEASE
     Dosage: STRENGTH: 150 MG/10 ML
     Dates: start: 20140827
  10. VITAMIN B12 [Concomitant]
     Active Substance: CYANOCOBALAMIN
     Dosage: STRENGTH: 100 MCG, DOSE: ONE TABLET
     Route: 048
  11. DIPHENHYDRAMINE HYDROCHLORIDE. [Concomitant]
     Active Substance: DIPHENHYDRAMINE HYDROCHLORIDE
     Dosage: STRENGTH: 25 MG, DOSE: 1 TABLET
     Route: 048
  12. NITROSTAT [Concomitant]
     Active Substance: NITROGLYCERIN
     Indication: CHEST PAIN
     Dosage: STRENGHT: 0.4 MG, DOSE: 1 TABLET ,AY REPEAT AFTER 5 MINUTES UP TO 3 TIMES
     Route: 060
     Dates: start: 20140508
  13. CHONDROITIN SULFATE/GLUCOSAMINE [Concomitant]
     Dosage: STRENGTH: 400-500 MG TABLET, DOSE: 1 TABLET
     Route: 048
  14. LYRICA [Concomitant]
     Active Substance: PREGABALIN
     Indication: BACK PAIN
     Dosage: STRENGTH: 75 MG, DOSE: 1 CAPSULE
     Dates: start: 20130527
  15. ATENOLOL. [Concomitant]
     Active Substance: ATENOLOL
     Dosage: STRENGTH: 50 MG, DOSE: 1 TABLET
     Dates: start: 20140214
  16. MIRALAX [Concomitant]
     Active Substance: POLYETHYLENE GLYCOL 3350
     Route: 048
  17. OCUVITE [Concomitant]
     Active Substance: VITAMINS
     Dosage: FORMULATION: ADUILT 50+, DOSE: 1
     Route: 048
  18. CELEBREX [Concomitant]
     Active Substance: CELECOXIB
     Dosage: STRENGTH: 200 MG, DOSE: 1 CAPSULE
     Dates: start: 20141223
  19. CRESTOR [Concomitant]
     Active Substance: ROSUVASTATIN CALCIUM
     Dosage: STRENGTH: 20 MG, DOSE: 1 TABLET
     Dates: start: 20130505
  20. SIMETHICONE [Concomitant]
     Active Substance: DIMETHICONE\SILICON DIOXIDE\SIMETHICONE
     Indication: ABDOMINAL DISTENSION
     Dosage: STRENGTH: 80 MG, DOSE: 1 CHEWABLE TABLET FOUR TIMES DAILY, AS NEEDED
     Dates: start: 20140312
  21. GAVISCON [Concomitant]
     Active Substance: ALUMINUM HYDROXIDE\MAGNESIUM CARBONATE
     Indication: ABDOMINAL DISTENSION
     Dosage: STRENGTH: EXTRA RELIEF FORMULA 508-475 MG/ 10 ML
     Dates: start: 20140303
  22. DEMEROL [Suspect]
     Active Substance: MEPERIDINE HYDROCHLORIDE
     Indication: HYPERLIPIDAEMIA
     Route: 065
  23. AMLODIPINE BESILATE [Concomitant]
     Active Substance: AMLODIPINE BESYLATE
     Dosage: STRENGHT: 10 MG, DOSE: 1 TABLET
     Dates: start: 20140807

REACTIONS (1)
  - Drug hypersensitivity [Unknown]
